FAERS Safety Report 5133576-X (Version None)
Quarter: 2006Q4

REPORT INFORMATION
  Report Type: 
  Country: None (occurrence: None)
  Receive Date: 20061018
  Receipt Date: 20061005
  Transmission Date: 20070319
  Serious: Yes (Death, Other)
  Sender: FDA-Public Use
  Company Number: 2006123405

PATIENT
  Age: 96 Year

DRUGS (2)
  1. LYRICA [Suspect]
  2. ALL OTHER THERAPEUTIC PRODUCTS [Concomitant]

REACTIONS (2)
  - CONVULSION [None]
  - MYOCARDIAL INFARCTION [None]
